FAERS Safety Report 7260978-8 (Version None)
Quarter: 2011Q1

REPORT INFORMATION
  Report Type: 
  Country: None (occurrence: None)
  Receive Date: 20110130
  Receipt Date: 20101123
  Transmission Date: 20110831
  Serious: No
  Sender: FDA-Public Use
  Company Number: US-ABBOTT-10P-163-0687386-00

PATIENT
  Sex: Female
  Weight: 66.284 kg

DRUGS (18)
  1. HUMIRA [Suspect]
     Dates: start: 20100801
  2. CLOBETASOL [Concomitant]
     Indication: PSORIASIS
  3. ANTIBIOTIC [Concomitant]
     Indication: TOOTH ABSCESS
     Dates: start: 20091101, end: 20091101
  4. LISINOPRIL [Concomitant]
     Indication: HYPERTENSION
  5. PRAVASTATIN [Concomitant]
     Indication: BLOOD CHOLESTEROL INCREASED
  6. ALPRAZOLAM [Concomitant]
     Indication: INSOMNIA
  7. SYMBICORT [Concomitant]
     Indication: ASTHMA
  8. HUMIRA [Suspect]
     Indication: PSORIATIC ARTHROPATHY
     Dates: start: 20060101, end: 20100801
  9. NEURONTIN [Concomitant]
     Indication: PAIN
  10. FLUOCINONIDE [Concomitant]
     Indication: PSORIASIS
  11. TIZANIDINE [Concomitant]
     Indication: MUSCLE RELAXANT THERAPY
  12. CYMBALTA [Concomitant]
     Indication: DEPRESSION
  13. PRILOSEC OTC [Concomitant]
     Indication: ULCER
  14. PRIMIDONE [Concomitant]
     Indication: TREMOR
  15. DILTIAZEM [Concomitant]
     Indication: HYPERTENSION
  16. HYDROCHLOROTHIAZIDE [Concomitant]
     Indication: HYPERTENSION
  17. CYMBALTA [Concomitant]
     Indication: PAIN
  18. PLAVIX [Concomitant]
     Indication: THROMBOSIS PROPHYLAXIS

REACTIONS (3)
  - SKIN LESION [None]
  - TOOTH ABSCESS [None]
  - PSORIASIS [None]
